FAERS Safety Report 6437507-1 (Version None)
Quarter: 2009Q4

REPORT INFORMATION
  Report Type: 
  Country: None (occurrence: None)
  Receive Date: 20091112
  Receipt Date: 20091109
  Transmission Date: 20100525
  Serious: Yes (Life-Threatening)
  Sender: FDA-Public Use
  Company Number: DE-TEVA-187782ISR

PATIENT
  Age: 66 Year
  Sex: Male

DRUGS (1)
  1. METOPROLOL [Suspect]
     Indication: HYPERTENSION
     Route: 048

REACTIONS (1)
  - ATRIOVENTRICULAR BLOCK SECOND DEGREE [None]
